FAERS Safety Report 8088096-X (Version None)
Quarter: 2012Q1

REPORT INFORMATION
  Report Type: 
  Country: None (occurrence: None)
  Receive Date: 20120131
  Receipt Date: 20120123
  Transmission Date: 20120608
  Serious: Yes (Other)
  Sender: FDA-Public Use
  Company Number: US-BIOGENIDEC-2012BI003227

PATIENT
  Age: 31 Year
  Sex: Female

DRUGS (2)
  1. AVONEX [Suspect]
     Indication: MULTIPLE SCLEROSIS
     Route: 030
  2. AVONEX [Suspect]
     Route: 030
     Dates: start: 20070426, end: 20110301

REACTIONS (4)
  - FOETAL HEART RATE DECREASED [None]
  - STILLBIRTH [None]
  - FOETAL HYPOKINESIA [None]
  - AMNIOTIC FLUID VOLUME DECREASED [None]
